FAERS Safety Report 5691368-7 (Version None)
Quarter: 2008Q2

REPORT INFORMATION
  Report Type: 
  Country: None (occurrence: None)
  Receive Date: 20080402
  Receipt Date: 20080324
  Transmission Date: 20081010
  Serious: Yes (Hospitalization, Other)
  Sender: FDA-Public Use
  Company Number: PHHO2008IN01938

PATIENT
  Age: 57 Year
  Sex: Male
  Weight: 82.18 kg

DRUGS (7)
  1. VALSARTAN + HCTZ + AMLODIPINE [Suspect]
     Indication: HYPERTENSION
     Dosage: 160 MG, QD
     Route: 048
     Dates: start: 20080122, end: 20080127
  2. VALSARTAN + HCTZ + AMLODIPINE [Suspect]
     Dosage: 360 MG, QD
     Route: 048
     Dates: start: 20080128, end: 20080129
  3. VALSARTAN + HCTZ + AMLODIPINE [Suspect]
     Route: 048
  4. VALSARTAN + HCTZ + AMLODIPINE [Suspect]
     Dosage: 12.5 MG, QD
     Route: 048
     Dates: start: 20080122, end: 20080127
  5. VALSARTAN + HCTZ + AMLODIPINE [Suspect]
     Dosage: 25 MG, QD
     Route: 048
     Dates: start: 20080128, end: 20080129
  6. VALSARTAN + HCTZ + AMLODIPINE [Suspect]
     Dosage: 5 MG, QD
     Route: 048
     Dates: start: 20080122, end: 20080127
  7. VALSARTAN + HCTZ + AMLODIPINE [Suspect]
     Dosage: 10 MG, QD
     Route: 048
     Dates: start: 20080128, end: 20080129

REACTIONS (3)
  - ATRIAL FIBRILLATION [None]
  - HEART RATE IRREGULAR [None]
  - PALPITATIONS [None]
